FAERS Safety Report 10661010 (Version 1)
Quarter: 2014Q4

REPORT INFORMATION
  Report Type: Spontaneous
  Country: GB (occurrence: GB)
  Receive Date: 20141218
  Receipt Date: 20141218
  Transmission Date: 20150529
  Serious: Yes (Hospitalization, Other)
  Sender: FDA-Public Use
  Company Number: GB-DRREDDYS-GER/UKI/14/0044971

PATIENT
  Age: 83 Year
  Sex: Male

DRUGS (1)
  1. MEMANTIN [Suspect]
     Active Substance: MEMANTINE
     Indication: MEMORY IMPAIRMENT
     Route: 048

REACTIONS (5)
  - Lethargy [Unknown]
  - Trifascicular block [Not Recovered/Not Resolved]
  - Hyponatraemia [Not Recovered/Not Resolved]
  - Syncope [Recovered/Resolved]
  - Malaise [Unknown]
